FAERS Safety Report 9568292 (Version 2)
Quarter: 2013Q3

REPORT INFORMATION
  Report Type: Spontaneous
  Country: US (occurrence: US)
  Receive Date: 20130930
  Receipt Date: 20130930
  Transmission Date: 20140515
  Serious: No
  Sender: FDA-Public Use
  Company Number: US-AMGEN-USASP2013056464

PATIENT
  Age: 53 Year
  Sex: Male
  Weight: 122.45 kg

DRUGS (12)
  1. ENBREL [Suspect]
     Indication: ANKYLOSING SPONDYLITIS
     Dosage: 50 MG, QWK
     Route: 058
  2. TRAMADOL [Concomitant]
     Dosage: 50 MG, UNK
  3. CONCERTA [Concomitant]
     Dosage: 54 MG, UNK
  4. ALPRAZOLAM [Concomitant]
     Dosage: 1 MG, UNK
  5. MAGNESIUM [Concomitant]
     Dosage: 400 MG, UNK
  6. STRESS B WITH IRON [Concomitant]
     Dosage: UNK
  7. PAROXETINE [Concomitant]
     Dosage: 25 MG, UNK
  8. ASA [Concomitant]
     Dosage: 81 MG, UNK
  9. VITAMIN D3 [Concomitant]
     Dosage: 2000 UNIT, UNK
  10. LISINOPRIL + HIDROCLOROTIAZIDA [Concomitant]
     Dosage: 20-12.5
  11. METOPROLOL [Concomitant]
     Dosage: 50 MG, UNK
  12. ACIPHEX [Concomitant]
     Dosage: 20 MG, UNK

REACTIONS (1)
  - Drug ineffective [Unknown]
